FAERS Safety Report 7940137-3 (Version None)
Quarter: 2011Q4

REPORT INFORMATION
  Report Type: 
  Country: None (occurrence: None)
  Receive Date: 20111125
  Receipt Date: 20111114
  Transmission Date: 20120403
  Serious: Yes (Life-Threatening, Hospitalization, Other)
  Sender: FDA-Public Use
  Company Number: US-ELI_LILLY_AND_COMPANY-US201111005036

PATIENT
  Sex: Female

DRUGS (16)
  1. FERROUS SULFATE TAB [Concomitant]
     Dosage: 325 MG, UNK
  2. PERCOCET [Concomitant]
  3. BYETTA [Concomitant]
     Dosage: 10 MG, QD
  4. AGGRENOX [Concomitant]
     Dosage: UNK, BID
  5. COPAXONE [Concomitant]
     Dosage: 20 UG, UNK
  6. METFORMIN [Concomitant]
     Dosage: 750 MG, UNK
  7. METOPROLOL TARTRATE [Concomitant]
     Dosage: 25 MG, UNK
  8. BENICAR [Concomitant]
  9. FORTEO [Suspect]
     Indication: OSTEOPOROSIS
     Dosage: 20 UG, QD
     Route: 065
  10. BACLOFEN [Concomitant]
     Dosage: 20 MG, UNK
  11. OMEPRAZOLE [Concomitant]
     Dosage: 10 MG, UNK
  12. VALTREX [Concomitant]
     Dosage: 500 MG, UNK
  13. LORATADINE [Concomitant]
     Dosage: 10 MG, UNK
  14. TEGRETOL [Concomitant]
     Dosage: 200 MG, UNK
  15. WARFARIN SODIUM [Concomitant]
  16. CELEXA [Concomitant]
     Dosage: 10 MG, QD

REACTIONS (3)
  - CONVULSION [None]
  - HUMERUS FRACTURE [None]
  - MECHANICAL VENTILATION [None]
